FAERS Safety Report 21604776 (Version 1)
Quarter: 2022Q4

REPORT INFORMATION
  Report Type: Spontaneous
  Country: US (occurrence: None)
  Receive Date: 20221115
  Receipt Date: 20221115
  Transmission Date: 20230113
  Serious: Yes (Other)
  Sender: FDA-Public Use
  Company Number: None

PATIENT
  Age: 41 Year
  Sex: Female

DRUGS (2)
  1. ENBREL [Suspect]
     Active Substance: ETANERCEPT
     Indication: Rheumatoid arthritis
     Dosage: OTHER QUANTITY : 25 MG/0.5ML;?FREQUENCY : TWICE A WEEK;?
     Route: 058
     Dates: start: 20210602
  2. ENBREL [Suspect]
     Active Substance: ETANERCEPT
     Dosage: FREQUENCY : TWICE A WEEK;?
     Route: 058

REACTIONS (1)
  - Hip arthroplasty [None]

NARRATIVE: CASE EVENT DATE: 20220803
